FAERS Safety Report 11460391 (Version 2)
Quarter: 2015Q3

REPORT INFORMATION
  Report Type: Spontaneous
  Country: JP (occurrence: JP)
  Receive Date: 20150904
  Receipt Date: 20150910
  Transmission Date: 20151125
  Serious: Yes (Death, Other)
  Sender: FDA-Public Use
  Company Number: JP-BAXTER-2015BAX048660

PATIENT
  Age: 50 Year
  Sex: Female

DRUGS (15)
  1. ENDOXAN 1G [Suspect]
     Active Substance: CYCLOPHOSPHAMIDE
     Indication: ADULT T-CELL LYMPHOMA/LEUKAEMIA
     Dosage: COMPLETED WITH IN ABOUT 7 MONTHS
     Route: 065
  2. PREDNISOLONE. [Suspect]
     Active Substance: PREDNISOLONE
     Indication: ADULT T-CELL LYMPHOMA/LEUKAEMIA
     Dosage: COMPLETED WITH IN ABOUT 7 MONTHS
     Route: 065
  3. ACLARUBICIN [Suspect]
     Active Substance: ACLARUBICIN
     Indication: ACUTE MYELOID LEUKAEMIA
     Route: 065
     Dates: start: 2012
  4. CELLTOP 100 MG/5 ML, SOLUTION INJECTABLE POUR PERFUSION [Suspect]
     Active Substance: ETOPOSIDE
     Indication: PROPHYLACTIC CHEMOTHERAPY
     Dosage: 25MG/ DAY, EVERY OTHER DAY
     Route: 065
  5. PREDNISOLONE. [Suspect]
     Active Substance: PREDNISOLONE
     Indication: PROPHYLACTIC CHEMOTHERAPY
     Dosage: COMPLETED WITH IN ABOUT 7 MONTHS
     Route: 037
  6. RANIMUSTINE [Suspect]
     Active Substance: RANIMUSTINE
     Indication: ADULT T-CELL LYMPHOMA/LEUKAEMIA
     Dosage: COMPLETED WITH IN ABOUT 7 MONTHS
     Route: 065
  7. CYTARABINE. [Suspect]
     Active Substance: CYTARABINE
     Indication: ACUTE MYELOID LEUKAEMIA
     Route: 065
     Dates: start: 2012
  8. DOXORUBICIN HYDROCHLORIDE. [Suspect]
     Active Substance: DOXORUBICIN HYDROCHLORIDE
     Indication: ADULT T-CELL LYMPHOMA/LEUKAEMIA
     Dosage: COMPLETED WITH IN ABOUT 7 MONTHS
     Route: 065
  9. METHOTREXATE [Suspect]
     Active Substance: METHOTREXATE
     Indication: PROPHYLACTIC CHEMOTHERAPY
     Dosage: COMPLETED WITH IN ABOUT 7 MONTHS
     Route: 037
  10. G-CSF [Suspect]
     Active Substance: GRANULOCYTE COLONY-STIMULATING FACTOR NOS
     Indication: ACUTE MYELOID LEUKAEMIA
     Route: 065
     Dates: start: 2012
  11. VINDESINE SULFATE [Suspect]
     Active Substance: VINDESINE SULFATE
     Indication: ADULT T-CELL LYMPHOMA/LEUKAEMIA
     Dosage: COMPLETED WITH IN ABOUT 7 MONTHS
     Route: 065
  12. ONCOVIN [Suspect]
     Active Substance: VINCRISTINE SULFATE
     Indication: ADULT T-CELL LYMPHOMA/LEUKAEMIA
     Dosage: COMPLETED WITH IN ABOUT 7 MONTHS
     Route: 065
  13. CELLTOP 100 MG/5 ML, SOLUTION INJECTABLE POUR PERFUSION [Suspect]
     Active Substance: ETOPOSIDE
     Indication: ADULT T-CELL LYMPHOMA/LEUKAEMIA
     Dosage: COMPLETED WITH IN ABOUT 7 MONTHS
     Route: 065
  14. CARBOPLATIN. [Suspect]
     Active Substance: CARBOPLATIN
     Indication: ADULT T-CELL LYMPHOMA/LEUKAEMIA
     Dosage: COMPLETED WITH IN ABOUT 7 MONTHS
     Route: 065
  15. CYTARABINE. [Suspect]
     Active Substance: CYTARABINE
     Indication: PROPHYLACTIC CHEMOTHERAPY
     Dosage: COMPLETED WITH IN ABOUT 7 MONTHS
     Route: 037

REACTIONS (4)
  - Acute myeloid leukaemia [Not Recovered/Not Resolved]
  - Acute myeloid leukaemia [Not Recovered/Not Resolved]
  - Pneumonia [Not Recovered/Not Resolved]
  - Disease complication [Fatal]

NARRATIVE: CASE EVENT DATE: 2012
